FAERS Safety Report 20003526 (Version 5)
Quarter: 2022Q1

REPORT INFORMATION
  Report Type: Report from Study
  Country: US (occurrence: US)
  Receive Date: 20211028
  Receipt Date: 20220323
  Transmission Date: 20220423
  Serious: No
  Sender: FDA-Public Use
  Company Number: US-NOVARTISTESTPH-NVSC2021US245926

PATIENT
  Sex: Female

DRUGS (2)
  1. COSENTYX [Suspect]
     Active Substance: SECUKINUMAB
     Indication: Psoriasis
     Route: 058
  2. COSENTYX [Suspect]
     Active Substance: SECUKINUMAB
     Route: 058

REACTIONS (9)
  - Hypersensitivity [Unknown]
  - Condition aggravated [Unknown]
  - Nasal congestion [Unknown]
  - Sinus disorder [Unknown]
  - Cough [Unknown]
  - Injection site bruising [Unknown]
  - Injection site pain [Unknown]
  - Rhinorrhoea [Unknown]
  - Drug ineffective [Unknown]
